FAERS Safety Report 25776904 (Version 1)
Quarter: 2025Q3

REPORT INFORMATION
  Report Type: Spontaneous
  Country: US (occurrence: US)
  Receive Date: 20250909
  Receipt Date: 20250909
  Transmission Date: 20251021
  Serious: No
  Sender: DOMPE FARMACEUTICI
  Company Number: US-FARMAPROD-202503-1011

PATIENT
  Sex: Female
  Weight: 77.34 kg

DRUGS (32)
  1. OXERVATE [Suspect]
     Active Substance: CENEGERMIN-BKBJ
     Indication: Neurotrophic keratopathy
     Route: 047
     Dates: start: 20230209, end: 20230406
  2. OXERVATE [Suspect]
     Active Substance: CENEGERMIN-BKBJ
     Route: 047
     Dates: start: 20250320
  3. OXERVATE [Suspect]
     Active Substance: CENEGERMIN-BKBJ
     Route: 047
     Dates: start: 20230815, end: 20231010
  4. DEXAMETHASONE [Concomitant]
     Active Substance: DEXAMETHASONE
  5. VALIUM [Concomitant]
     Active Substance: DIAZEPAM
  6. NITROFURANTOIN MONOHYDRATE MACROCRYSTALS [Concomitant]
     Active Substance: NITROFURANTOIN\NITROFURANTOIN MONOHYDRATE
  7. ACYCLOVIR [Concomitant]
     Active Substance: ACYCLOVIR
  8. AZITHROMYCIN [Concomitant]
     Active Substance: AZITHROMYCIN
  9. PREGABALIN [Concomitant]
     Active Substance: PREGABALIN
  10. SIMVASTATIN [Concomitant]
     Active Substance: SIMVASTATIN
  11. VENTOLIN HFA [Concomitant]
     Active Substance: ALBUTEROL SULFATE
  12. VITAMIN D2 [Concomitant]
     Active Substance: ERGOCALCIFEROL
  13. ASPIRIN [Concomitant]
     Active Substance: ASPIRIN
  14. ELIQUIS [Concomitant]
     Active Substance: APIXABAN
  15. ALBUTEROL SULF HFA [Concomitant]
  16. TRELEGY ELLIPTA [Concomitant]
     Active Substance: FLUTICASONE FUROATE\UMECLIDINIUM BROMIDE\VILANTEROL TRIFENATATE
  17. LEVOTHYROXINE SODIUM [Concomitant]
     Active Substance: LEVOTHYROXINE SODIUM
  18. NITROGLYCERIN [Concomitant]
     Active Substance: NITROGLYCERIN
  19. VENTAVIS [Concomitant]
     Active Substance: ILOPROST
  20. KEYTRUDA [Concomitant]
     Active Substance: PEMBROLIZUMAB
  21. REFRESH P.M. [Concomitant]
     Active Substance: MINERAL OIL\PETROLATUM
  22. PHENYLEPHRINE HYDROCHLORIDE [Concomitant]
     Active Substance: PHENYLEPHRINE HYDROCHLORIDE
  23. TYLENOL [Concomitant]
     Active Substance: ACETAMINOPHEN
  24. BENADRYL [Concomitant]
     Active Substance: DIPHENHYDRAMINE HYDROCHLORIDE
  25. VITAMIN C [Concomitant]
     Active Substance: ASCORBIC ACID
  26. VITAMINS [Concomitant]
     Active Substance: VITAMINS
  27. LEVOTHYROXINE [Concomitant]
     Active Substance: LEVOTHYROXINE
  28. METOPROLOL TARTRATE [Concomitant]
     Active Substance: METOPROLOL TARTRATE
  29. POTASSIUM CHLORIDE [Concomitant]
     Active Substance: POTASSIUM CHLORIDE
  30. VITAMIN D3 [Concomitant]
     Active Substance: CHOLECALCIFEROL
  31. FUROSEMIDE [Concomitant]
     Active Substance: FUROSEMIDE
  32. OASIS TEARS [Concomitant]
     Active Substance: GLYCERIN

REACTIONS (1)
  - Eye pain [Unknown]
